FAERS Safety Report 24170146 (Version 1)
Quarter: 2024Q3

REPORT INFORMATION
  Report Type: Spontaneous
  Country: CN (occurrence: CN)
  Receive Date: 20240803
  Receipt Date: 20240803
  Transmission Date: 20241017
  Serious: Yes (Hospitalization)
  Sender: ABBVIE
  Company Number: CN-ABBVIE-5863587

PATIENT
  Age: 61 Year
  Sex: Female
  Weight: 55 kg

DRUGS (1)
  1. VENETOCLAX [Suspect]
     Active Substance: VENETOCLAX
     Indication: Leukaemia
     Route: 048
     Dates: start: 20240719, end: 20240719

REACTIONS (2)
  - Rash macular [Recovering/Resolving]
  - Skin lesion [Unknown]

NARRATIVE: CASE EVENT DATE: 20240720
